FAERS Safety Report 5242753-9 (Version None)
Quarter: 2007Q1

REPORT INFORMATION
  Report Type: 
  Country: None (occurrence: None)
  Receive Date: 20070221
  Receipt Date: 20070212
  Transmission Date: 20070707
  Serious: Yes (Other)
  Sender: FDA-Public Use
  Company Number: GB-JNJFOC-20070200646

PATIENT
  Sex: Female
  Weight: 34.02 kg

DRUGS (8)
  1. RISPERDAL [Suspect]
     Indication: COGNITIVE DISORDER
     Dosage: 2.0 MG AT NIGHT AND 0.5 MG IN THE MORNING
     Route: 048
  2. RISPERDAL [Suspect]
     Indication: SCHIZOAFFECTIVE DISORDER
     Route: 048
  3. ZOLPIDEM TARTRATE [Concomitant]
     Indication: INSOMNIA
     Dosage: AT NIGHT
     Route: 065
  4. FOLIC ACID [Concomitant]
     Route: 065
  5. MOVICOL [Concomitant]
     Indication: CONSTIPATION
     Dosage: 1 SACHET IN THE MORNING
     Route: 065
  6. PARACETAMOL [Concomitant]
     Indication: PAIN
     Route: 065
  7. E45 CREAM [Concomitant]
     Indication: DRY SKIN
     Route: 065
  8. COAMILOFRUSE [Concomitant]
     Indication: HYPERHIDROSIS
     Dosage: 1 TABLET IN THE MORNING
     Route: 065

REACTIONS (7)
  - CARDIO-RESPIRATORY ARREST [None]
  - CIRCULATORY COLLAPSE [None]
  - FATIGUE [None]
  - HYPOTHERMIA [None]
  - RASH GENERALISED [None]
  - SEDATION [None]
  - SKIN INDURATION [None]
